FAERS Safety Report 7963689-6 (Version None)
Quarter: 2011Q4

REPORT INFORMATION
  Report Type: 
  Country: None (occurrence: None)
  Receive Date: 20111122
  Receipt Date: 20110622
  Transmission Date: 20120403
  Serious: No
  Sender: FDA-Public Use
  Company Number: PHHY2011US55705

PATIENT
  Sex: Female
  Weight: 104.3 kg

DRUGS (11)
  1. SYNTHROID [Concomitant]
  2. GILENYA [Suspect]
     Dosage: 0.5 MG, QD
  3. PAXIL [Concomitant]
  4. IBUPROFEN [Concomitant]
  5. VICODIN [Concomitant]
  6. PRILOSEC [Concomitant]
  7. PROAIR HFA AER (SALBUTAMOL SULFATE) [Concomitant]
  8. ATIVAN [Concomitant]
  9. VITAMIN D3 ^STREULI^ (COLECALCIFEROL) [Concomitant]
  10. DITROPAN [Concomitant]
  11. CALCIUM + D (CALCIUM) [Concomitant]

REACTIONS (2)
  - HYPOAESTHESIA [None]
  - FACIAL PAIN [None]
